FAERS Safety Report 19583991 (Version 1)
Quarter: 2021Q3

REPORT INFORMATION
  Report Type: Spontaneous
  Country: US (occurrence: US)
  Receive Date: 20210720
  Receipt Date: 20210720
  Transmission Date: 20211014
  Serious: No
  Sender: FDA-Public Use
  Company Number: US-JOURNEY MEDICAL CORPORATION-2021JNY00008

PATIENT
  Sex: Female

DRUGS (9)
  1. BIOTIN [Concomitant]
     Active Substance: BIOTIN
  2. BUPROPION XL [Concomitant]
     Active Substance: BUPROPION
  3. CITALOPRAM [Concomitant]
     Active Substance: CITALOPRAM HYDROBROMIDE
  4. VITAMIN D3 [Concomitant]
     Active Substance: CHOLECALCIFEROL
     Dosage: 5000 IU, 1X/DAY
  5. B?COMPLEX WITH VITAMIN C [Concomitant]
  6. QBREXZA [Suspect]
     Active Substance: GLYCOPYRRONIUM TOSYLATE
     Indication: HYPERHIDROSIS
     Dosage: 1 DOSAGE UNITS, 1X/DAY
     Dates: start: 2019, end: 20210526
  7. ALBUTEROL INHALER [Concomitant]
     Active Substance: ALBUTEROL
     Dosage: UNK, AS NEEDED
  8. ALBUTEROL NEBULIZER [Concomitant]
     Active Substance: ALBUTEROL
     Dosage: UNK, AS NEEDED
  9. TRELEGY ELLIPTA [Concomitant]
     Active Substance: FLUTICASONE FUROATE\UMECLIDINIUM BROMIDE\VILANTEROL TRIFENATATE

REACTIONS (6)
  - Vision blurred [Unknown]
  - Urinary hesitation [Unknown]
  - Gastrointestinal motility disorder [Unknown]
  - Multiple use of single-use product [Recovered/Resolved]
  - Urinary tract infection [Unknown]
  - Pollakiuria [Unknown]
